FAERS Safety Report 9996248 (Version 1)
Quarter: 2014Q1

REPORT INFORMATION
  Report Type: Spontaneous
  Country: US (occurrence: US)
  Receive Date: 20140311
  Receipt Date: 20140311
  Transmission Date: 20141002
  Serious: Yes (Hospitalization, Other)
  Sender: FDA-Public Use
  Company Number: US-BAYER-2014-032345

PATIENT
  Sex: Female

DRUGS (4)
  1. AVELOX I.V. [Suspect]
     Indication: PNEUMONIA
     Route: 042
  2. BAYER ASPIRIN REGIMEN ADULT LOW STRENGTH [Suspect]
  3. PREDNISONE [Concomitant]
  4. INSULIN [Concomitant]

REACTIONS (19)
  - Hypersensitivity [Not Recovered/Not Resolved]
  - Thinking abnormal [Not Recovered/Not Resolved]
  - Fluid retention [Not Recovered/Not Resolved]
  - Burning sensation [Not Recovered/Not Resolved]
  - Muscle spasms [Not Recovered/Not Resolved]
  - Myalgia [Not Recovered/Not Resolved]
  - Influenza like illness [Not Recovered/Not Resolved]
  - Cough [Not Recovered/Not Resolved]
  - Dyspnoea [Not Recovered/Not Resolved]
  - Palpitations [Not Recovered/Not Resolved]
  - Anosmia [Not Recovered/Not Resolved]
  - Aphasia [Not Recovered/Not Resolved]
  - Dizziness [Not Recovered/Not Resolved]
  - Hypoaesthesia [Not Recovered/Not Resolved]
  - Vertigo [Not Recovered/Not Resolved]
  - Hallucination [Not Recovered/Not Resolved]
  - Aphagia [Not Recovered/Not Resolved]
  - Gait disturbance [Not Recovered/Not Resolved]
  - Drug hypersensitivity [Not Recovered/Not Resolved]
